FAERS Safety Report 19736356 (Version 1)
Quarter: 2021Q3

REPORT INFORMATION
  Report Type: Spontaneous
  Country: US (occurrence: US)
  Receive Date: 20210824
  Receipt Date: 20210824
  Transmission Date: 20211014
  Serious: Yes (Other)
  Sender: FDA-Public Use
  Company Number: US-LANNETT COMPANY, INC.-US-2021LAN000293

PATIENT
  Sex: Female

DRUGS (7)
  1. NP THYROID [Suspect]
     Active Substance: LEVOTHYROXINE\LIOTHYRONINE
     Dosage: 15 MG FOR TWO DAYS 30 MG FOR ONE DAY  (REPEAT CYCLE)
     Route: 048
     Dates: start: 201904, end: 202101
  2. LEVOTHYROXINE SODIUM. [Suspect]
     Active Substance: LEVOTHYROXINE SODIUM
     Indication: PRODUCT USED FOR UNKNOWN INDICATION
     Dosage: UNK
     Route: 065
  3. NP THYROID [Suspect]
     Active Substance: LEVOTHYROXINE\LIOTHYRONINE
     Indication: HYPOTHYROIDISM
     Dosage: 15 MG, QD
     Route: 048
     Dates: start: 201809
  4. NEXIUM [Concomitant]
     Active Substance: ESOMEPRAZOLE MAGNESIUM
     Indication: GASTROOESOPHAGEAL REFLUX DISEASE
     Dosage: UNK
     Route: 065
  5. NP THYROID [Suspect]
     Active Substance: LEVOTHYROXINE\LIOTHYRONINE
     Dosage: 15 MG FOR TWO DAYS THEN 30 MG FOR TWO DAYS (REPEAT CYCLE)
     Route: 048
     Dates: start: 202101
  6. NP THYROID [Suspect]
     Active Substance: LEVOTHYROXINE\LIOTHYRONINE
     Dosage: 15 MG QD ONE DAY AND 30 MG QOD (ALTERNATING THE DOSES)
     Route: 048
     Dates: start: 201901, end: 2019
  7. NP THYROID [Suspect]
     Active Substance: LEVOTHYROXINE\LIOTHYRONINE
     Dosage: 30 MG, QD
     Route: 048
     Dates: start: 201901, end: 201901

REACTIONS (5)
  - Neuropathy peripheral [Unknown]
  - Lip swelling [Unknown]
  - Gait disturbance [Unknown]
  - Drug hypersensitivity [Unknown]
  - Peripheral coldness [Unknown]
